FAERS Safety Report 15776720 (Version 4)
Quarter: 2021Q3

REPORT INFORMATION
  Report Type: Spontaneous
  Country: US (occurrence: US)
  Receive Date: 20181231
  Receipt Date: 20210709
  Transmission Date: 20211014
  Serious: Yes (Hospitalization)
  Sender: FDA-Public Use
  Company Number: US-PFIZER INC-2018535600

PATIENT
  Age: 4 Year
  Sex: Male

DRUGS (4)
  1. GENOTROPIN [Suspect]
     Active Substance: SOMATROPIN
     Dosage: 0.7 MG, DAILY
     Dates: start: 20180626
  2. GENOTROPIN [Suspect]
     Active Substance: SOMATROPIN
     Dosage: 0.7 MG, DAILY (5MG CARTRIDGE, 0.7MG DAILY)
  3. GENOTROPIN [Suspect]
     Active Substance: SOMATROPIN
     Dosage: 0.6 MG, DAILY
     Dates: start: 20170816
  4. GENOTROPIN [Suspect]
     Active Substance: SOMATROPIN
     Dosage: 0.7 MG, DAILY
     Dates: start: 20170816

REACTIONS (7)
  - Cardiac arrest [Unknown]
  - Illness [Unknown]
  - Reaction to preservatives [Unknown]
  - Rash [Unknown]
  - Condition aggravated [Unknown]
  - Product dose omission issue [Unknown]
  - Pruritus [Unknown]
